FAERS Safety Report 24444394 (Version 2)
Quarter: 2024Q4

REPORT INFORMATION
  Report Type: Report from Study
  Country: CA (occurrence: CA)
  Receive Date: 20241016
  Receipt Date: 20241218
  Transmission Date: 20250114
  Serious: Yes (Other)
  Sender: JOHNSON AND JOHNSON
  Company Number: CA-JNJFOC-20240542251

PATIENT
  Age: 80 Year
  Sex: Female

DRUGS (2)
  1. SIMPONI [Suspect]
     Active Substance: GOLIMUMAB
     Indication: Rheumatoid arthritis
     Route: 058
     Dates: start: 20190103
  2. SIMPONI [Suspect]
     Active Substance: GOLIMUMAB
     Route: 058
     Dates: start: 20190103

REACTIONS (8)
  - Pneumonia [Recovering/Resolving]
  - Rib fracture [Recovering/Resolving]
  - SARS-CoV-2 test positive [Unknown]
  - Cystitis [Not Recovered/Not Resolved]
  - Respiratory tract congestion [Recovered/Resolved]
  - Nasopharyngitis [Not Recovered/Not Resolved]
  - Tremor [Not Recovered/Not Resolved]
  - Fall [Unknown]

NARRATIVE: CASE EVENT DATE: 20240511
